FAERS Safety Report 18752181 (Version 1)
Quarter: 2021Q1

REPORT INFORMATION
  Report Type: Spontaneous
  Country: US (occurrence: US)
  Receive Date: 20210118
  Receipt Date: 20210118
  Transmission Date: 20210419
  Serious: No
  Sender: FDA-Public Use
  Company Number: US-FOUNDATIONCONSUMERHC-2020-US-021184

PATIENT
  Age: 32 Year
  Sex: Female
  Weight: 58.06 kg

DRUGS (3)
  1. UNSPECIFIED HERBAL SUPPLEMENTS [Concomitant]
     Active Substance: HERBALS
  2. PROBIOTIC [Concomitant]
     Active Substance: PROBIOTICS NOS
  3. PLAN B ONE?STEP [Suspect]
     Active Substance: LEVONORGESTREL
     Indication: POST COITAL CONTRACEPTION
     Dosage: 1 TABLET
     Route: 048
     Dates: start: 20201001, end: 20201001

REACTIONS (1)
  - Vaginal haemorrhage [Recovered/Resolved]

NARRATIVE: CASE EVENT DATE: 20201008
